FAERS Safety Report 10185733 (Version 2)
Quarter: 2014Q2

REPORT INFORMATION
  Report Type: Spontaneous
  Country: JP (occurrence: JP)
  Receive Date: 20140521
  Receipt Date: 20140619
  Transmission Date: 20141212
  Serious: Yes (Disabling)
  Sender: FDA-Public Use
  Company Number: PHHY2014JP059661

PATIENT
  Age: 72 Year
  Sex: Female

DRUGS (1)
  1. VOLTAREN [Suspect]
     Dosage: 25 MG, DAILY
     Route: 054
     Dates: start: 201108, end: 201109

REACTIONS (2)
  - Hypoxic-ischaemic encephalopathy [Not Recovered/Not Resolved]
  - Anaphylactoid shock [Not Recovered/Not Resolved]
